FAERS Safety Report 12947137 (Version 1)
Quarter: 2016Q4

REPORT INFORMATION
  Report Type: Spontaneous
  Country: US (occurrence: US)
  Receive Date: 20161116
  Receipt Date: 20161116
  Transmission Date: 20170207
  Serious: No
  Sender: FDA-Public Use
  Company Number: None

PATIENT
  Age: 77 Year
  Sex: Female
  Weight: 56.3 kg

DRUGS (7)
  1. LATANOPROST. [Concomitant]
     Active Substance: LATANOPROST
  2. OMEGA3 [Concomitant]
  3. CALCIUM [Concomitant]
     Active Substance: CALCIUM
  4. DORZOL/TIMOL [Concomitant]
  5. VITAMIN C [Concomitant]
     Active Substance: ASCORBIC ACID
  6. XIIDRA [Suspect]
     Active Substance: LIFITEGRAST
     Indication: DRY EYE
     Dosage: 60 SINGLE USE TWICE DAILY DROP IN EYE?
     Route: 047
     Dates: start: 20161006, end: 20161009
  7. ASPRIN [Concomitant]
     Active Substance: ASPIRIN

REACTIONS (6)
  - Headache [None]
  - Nausea [None]
  - Gait disturbance [None]
  - Balance disorder [None]
  - Malaise [None]
  - Vision blurred [None]

NARRATIVE: CASE EVENT DATE: 20161006
